FAERS Safety Report 13464659 (Version 1)
Quarter: 2017Q2

REPORT INFORMATION
  Report Type: Spontaneous
  Country: US (occurrence: US)
  Receive Date: 20170420
  Receipt Date: 20170420
  Transmission Date: 20170830
  Serious: Yes (Hospitalization, Other)
  Sender: FDA-Public Use
  Company Number: US-ROCHE-695886

PATIENT
  Age: 19 Year
  Sex: Female
  Weight: 59.9 kg

DRUGS (7)
  1. ACCUTANE [Suspect]
     Active Substance: ISOTRETINOIN
     Route: 048
     Dates: start: 19980910, end: 19980920
  2. ACCUTANE [Suspect]
     Active Substance: ISOTRETINOIN
     Route: 048
     Dates: start: 19990202, end: 19990212
  3. ACCUTANE [Suspect]
     Active Substance: ISOTRETINOIN
     Indication: ACNE
     Route: 048
  4. ACCUTANE [Suspect]
     Active Substance: ISOTRETINOIN
     Route: 048
     Dates: start: 19981013, end: 19990109
  5. ACCUTANE [Suspect]
     Active Substance: ISOTRETINOIN
     Route: 048
  6. ACCUTANE [Suspect]
     Active Substance: ISOTRETINOIN
     Route: 048
  7. TAZORAC [Concomitant]
     Active Substance: TAZAROTENE
     Indication: ACNE
     Route: 065

REACTIONS (7)
  - Inflammatory bowel disease [Unknown]
  - Lip dry [Unknown]
  - Colitis ulcerative [Unknown]
  - Myalgia [Unknown]
  - Acne [Unknown]
  - Dry skin [Unknown]
  - Eczema [Unknown]

NARRATIVE: CASE EVENT DATE: 19981013
